FAERS Safety Report 15147345 (Version 1)
Quarter: 2018Q3

REPORT INFORMATION
  Report Type: Spontaneous
  Country: GB (occurrence: GB)
  Receive Date: 20180716
  Receipt Date: 20180716
  Transmission Date: 20181010
  Serious: Yes (Life-Threatening)
  Sender: FDA-Public Use
  Company Number: GB-TEVA-2018-GB-926028

PATIENT
  Age: 57 Year
  Sex: Male
  Weight: 103.5 kg

DRUGS (8)
  1. VORTIOXETINE. [Concomitant]
     Active Substance: VORTIOXETINE
  2. LITHIUM CARBONATE. [Concomitant]
     Active Substance: LITHIUM CARBONATE
  3. COLECALCIFEROL [Concomitant]
     Active Substance: CHOLECALCIFEROL
  4. LATUDA [Interacting]
     Active Substance: LURASIDONE HYDROCHLORIDE
     Dosage: 111 MILLIGRAM DAILY;
     Route: 048
     Dates: start: 20180106
  5. CLONAZEPAM. [Concomitant]
     Active Substance: CLONAZEPAM
  6. CLARITHROMYCIN. [Suspect]
     Active Substance: CLARITHROMYCIN
     Indication: CELLULITIS
     Dosage: 1000 MILLIGRAM DAILY;
     Route: 048
     Dates: end: 20180608
  7. RIVAROXABAN [Concomitant]
     Active Substance: RIVAROXABAN
  8. CODEINE PHOSPHATE [Concomitant]
     Active Substance: CODEINE PHOSPHATE

REACTIONS (3)
  - Neuroleptic malignant syndrome [Recovering/Resolving]
  - Musculoskeletal stiffness [Unknown]
  - Drug interaction [Unknown]

NARRATIVE: CASE EVENT DATE: 20180506
